FAERS Safety Report 8085338-1 (Version None)
Quarter: 2012Q1

REPORT INFORMATION
  Report Type: 
  Country: None (occurrence: None)
  Receive Date: 20120128
  Receipt Date: 20110613
  Transmission Date: 20120608
  Serious: Yes (Hospitalization)
  Sender: FDA-Public Use
  Company Number: US-ABBOTT-10P-163-0636151-00

PATIENT
  Sex: Female
  Weight: 78.996 kg

DRUGS (17)
  1. GABAPENTIN [Concomitant]
     Indication: NEUROPATHY PERIPHERAL
  2. NASACORT [Concomitant]
     Indication: SINUS DISORDER
  3. CELEXA [Concomitant]
     Indication: DEPRESSION
  4. HUMIRA [Suspect]
     Indication: PSORIATIC ARTHROPATHY
     Dates: start: 20090801, end: 20110101
  5. SUPER B COMPLEX [Concomitant]
     Indication: VITAMIN SUPPLEMENTATION
     Dosage: DAILY
  6. ATENOLOL [Concomitant]
     Indication: HYPERTENSION
  7. DIAZIDE HCTZ [Concomitant]
     Indication: HYPERTENSION
  8. VERAPAMIL [Concomitant]
     Indication: BLOOD PRESSURE
     Dosage: ER
  9. CYMBALTA [Concomitant]
     Indication: PAIN
  10. CARVEDILOL [Concomitant]
     Indication: BLOOD PRESSURE
  11. RANTIDINE [Concomitant]
     Indication: GASTROOESOPHAGEAL REFLUX DISEASE
  12. SUDAFED NASAL DECONGESTANT [Concomitant]
     Indication: SINUS DISORDER
  13. DEXILANT [Concomitant]
     Indication: GASTRIC DISORDER
  14. LOSARTAN POTASSIUM [Concomitant]
     Indication: BLOOD PRESSURE
  15. HUMIRA [Suspect]
     Indication: PSORIASIS
     Dates: start: 20110401
  16. TIZANIDINE HCL [Concomitant]
     Indication: MUSCLE RELAXANT THERAPY
  17. CLONIDINE [Concomitant]
     Indication: HYPERTENSION
     Dosage: AS NEEDED

REACTIONS (23)
  - FATIGUE [None]
  - MOVEMENT DISORDER [None]
  - STAPHYLOCOCCAL INFECTION [None]
  - ABDOMINAL PAIN [None]
  - FACIAL PAIN [None]
  - ASTHENIA [None]
  - PANCREATITIS [None]
  - EAR PAIN [None]
  - CHILLS [None]
  - LETHARGY [None]
  - SWELLING [None]
  - DECREASED APPETITE [None]
  - MIGRAINE [None]
  - PSORIASIS [None]
  - HEADACHE [None]
  - PYREXIA [None]
  - MALAISE [None]
  - ARTHRALGIA [None]
  - SINUSITIS [None]
  - ORAL HERPES [None]
  - FLUID RETENTION [None]
  - CHRONIC FATIGUE SYNDROME [None]
  - FEELING OF BODY TEMPERATURE CHANGE [None]
